FAERS Safety Report 5931727-8 (Version None)
Quarter: 2008Q4

REPORT INFORMATION
  Report Type: 
  Country: None (occurrence: None)
  Receive Date: 20081027
  Receipt Date: 20081015
  Transmission Date: 20090506
  Serious: Yes (Other)
  Sender: FDA-Public Use
  Company Number: DE-ROCHE-590175

PATIENT
  Sex: Male

DRUGS (12)
  1. CELLCEPT [Suspect]
     Indication: POLYNEUROPATHY
     Dosage: REPORTED AS 1-0-2
     Route: 065
     Dates: start: 20080803
  2. MARCUMAR [Interacting]
     Indication: DRUG USE FOR UNKNOWN INDICATION
     Route: 065
  3. MARCUMAR [Interacting]
     Dosage: DOSAGE AS BEFORE
     Route: 065
     Dates: start: 20081010
  4. RESTEX [Concomitant]
     Dosage: AS NEEDED
  5. PANTOZOL [Concomitant]
     Dosage: IN THE MORNING
  6. DELIX [Concomitant]
  7. ALLOPURINOL [Concomitant]
     Dosage: IN THE MORNING
  8. LYRICA [Concomitant]
     Dosage: DRUG NAME REPORTED AS LYRIKA; IN THE MORNING
  9. BIPERIDEN HYDROCHLORIDE TAB [Concomitant]
     Dosage: DRUG NAME REPORTED AS TAMSOLIN; IN THE EVENING
  10. SPIRO [Concomitant]
  11. MOLSIDOMIN [Concomitant]
     Dosage: IN THE EVENING
     Dates: end: 20081010
  12. ISORBIDE [Concomitant]
     Dosage: DRUG NAME REPORTED AS ISISORBIT; IN THE MORNING

REACTIONS (4)
  - DRUG ADMINISTRATION ERROR [None]
  - DRUG INTERACTION [None]
  - POLYNEUROPATHY [None]
  - PROTHROMBIN TIME PROLONGED [None]
